FAERS Safety Report 4656184-3 (Version None)
Quarter: 2005Q2

REPORT INFORMATION
  Report Type: 
  Country: None (occurrence: None)
  Receive Date: 20050509
  Receipt Date: 20050125
  Transmission Date: 20051028
  Serious: No
  Sender: FDA-Public Use
  Company Number: US-GLAXOSMITHKLINE-A0542174A

PATIENT
  Age: 59 Year
  Sex: Female

DRUGS (7)
  1. AVANDAMET [Suspect]
     Dosage: 1TAB PER DAY
     Route: 048
  2. PREMARINE [Concomitant]
  3. ACCOLATE [Concomitant]
  4. THEO-DUR [Concomitant]
  5. CARDIZEM [Concomitant]
  6. HYZAAR [Concomitant]
  7. FLOVENT [Concomitant]

REACTIONS (3)
  - ASTHENIA [None]
  - DIZZINESS [None]
  - NAUSEA [None]
